FAERS Safety Report 26124229 (Version 1)
Quarter: 2025Q4

REPORT INFORMATION
  Report Type: Spontaneous
  Country: JP (occurrence: JP)
  Receive Date: 20251205
  Receipt Date: 20251205
  Transmission Date: 20260118
  Serious: Yes (Life-Threatening, Hospitalization, Other)
  Sender: UNICHEM
  Company Number: JP-UNICHEM LABORATORIES LIMITED-UNI-2025-JP-004020

PATIENT

DRUGS (3)
  1. GUANFACINE [Suspect]
     Active Substance: GUANFACINE
     Indication: Attention deficit hyperactivity disorder
     Dosage: 348 MILLIGRAM (EXTENDED RELEASE) (1ST OVERDOSE, DAY 0)
     Route: 065
  2. GUANFACINE [Suspect]
     Active Substance: GUANFACINE
     Indication: Autism spectrum disorder
     Dosage: 126 MILLIGRAM (EXTENDED RELEASE) (2ND OVERDOSE, DAY 57)
     Route: 065
  3. GUANFACINE [Suspect]
     Active Substance: GUANFACINE
     Dosage: 1344 MILLIGRAM (EXTENDED RELEASE) (3RD OVERDOSE, DAY 110)
     Route: 065

REACTIONS (5)
  - Hypoxia [Recovering/Resolving]
  - Respiratory failure [Recovering/Resolving]
  - Electrocardiogram QT prolonged [Recovering/Resolving]
  - Stress cardiomyopathy [Recovering/Resolving]
  - Intentional overdose [Unknown]
